FAERS Safety Report 12592503 (Version 2)
Quarter: 2018Q1

REPORT INFORMATION
  Report Type: Report from Study
  Country: JP (occurrence: JP)
  Receive Date: 20160726
  Receipt Date: 20180216
  Transmission Date: 20180508
  Serious: Yes (Hospitalization, Other)
  Sender: FDA-Public Use
  Company Number: JP-ASTELLAS-2009JP005556

PATIENT
  Age: 25 Year
  Sex: Female
  Weight: 46 kg

DRUGS (106)
  1. MEDROL [Suspect]
     Active Substance: METHYLPREDNISOLONE
     Route: 048
     Dates: start: 20071013, end: 20081219
  2. MEDROL [Suspect]
     Active Substance: METHYLPREDNISOLONE
     Route: 048
     Dates: start: 20081220, end: 20100824
  3. MEDROL [Suspect]
     Active Substance: METHYLPREDNISOLONE
     Route: 048
     Dates: start: 20110304, end: 20110317
  4. MEDROL [Suspect]
     Active Substance: METHYLPREDNISOLONE
     Route: 048
     Dates: start: 20110304, end: 20110317
  5. ALFAROL [Concomitant]
     Active Substance: ALFACALCIDOL
     Indication: OSTEOPOROSIS
     Dosage: 0.5 ?G, ONCE DAILY
     Route: 048
     Dates: end: 20111202
  6. TAKEPRON [Concomitant]
     Active Substance: LANSOPRAZOLE
     Route: 048
     Dates: start: 20150417
  7. PL [Concomitant]
     Active Substance: ACETAMINOPHEN\CAFFEINE\PROMETHAZINE\SALICYLAMIDE
     Indication: PHARYNGITIS
     Route: 048
     Dates: start: 2008
  8. PL [Concomitant]
     Active Substance: ACETAMINOPHEN\CAFFEINE\PROMETHAZINE\SALICYLAMIDE
     Route: 048
     Dates: start: 200901
  9. PL [Concomitant]
     Active Substance: ACETAMINOPHEN\CAFFEINE\PROMETHAZINE\SALICYLAMIDE
     Route: 048
     Dates: start: 201005
  10. TALION                             /01587402/ [Concomitant]
     Active Substance: BEPOTASTINE
     Route: 048
     Dates: start: 201001
  11. MEDICON                            /00048102/ [Concomitant]
     Active Substance: DEXTROMETHORPHAN HYDROBROMIDE
     Route: 048
     Dates: start: 200812
  12. MEDICON                            /00048102/ [Concomitant]
     Active Substance: DEXTROMETHORPHAN HYDROBROMIDE
     Route: 048
     Dates: start: 2011
  13. CEFZON [Concomitant]
     Active Substance: CEFDINIR
     Route: 048
     Dates: start: 200901
  14. CEFZON [Concomitant]
     Active Substance: CEFDINIR
     Route: 048
     Dates: start: 2010
  15. ASTOMIN [Concomitant]
     Active Substance: DIMEMORFAN
     Indication: PHARYNGITIS
     Route: 048
     Dates: start: 200904
  16. STROCAIN                           /00130301/ [Concomitant]
     Route: 048
     Dates: start: 2010
  17. SELBEX [Concomitant]
     Active Substance: TEPRENONE
     Indication: ABDOMINAL PAIN UPPER
     Route: 048
     Dates: start: 20080926, end: 20130308
  18. TAKEPRON [Concomitant]
     Active Substance: LANSOPRAZOLE
     Indication: PROPHYLAXIS
     Route: 048
     Dates: start: 20100331, end: 20150416
  19. LOXONIN [Concomitant]
     Active Substance: LOXOPROFEN SODIUM
     Indication: ABDOMINAL PAIN UPPER
     Route: 048
     Dates: start: 2008
  20. PL [Concomitant]
     Active Substance: ACETAMINOPHEN\CAFFEINE\PROMETHAZINE\SALICYLAMIDE
     Route: 048
     Dates: start: 2008
  21. PL [Concomitant]
     Active Substance: ACETAMINOPHEN\CAFFEINE\PROMETHAZINE\SALICYLAMIDE
     Route: 048
     Dates: start: 200910
  22. MEDICON                            /00048102/ [Concomitant]
     Active Substance: DEXTROMETHORPHAN HYDROBROMIDE
     Route: 048
     Dates: start: 201005
  23. CEFZON [Concomitant]
     Active Substance: CEFDINIR
     Route: 048
     Dates: start: 2009
  24. CEFZON [Concomitant]
     Active Substance: CEFDINIR
     Route: 048
     Dates: start: 201005
  25. ENDOXAN                            /00021101/ [Concomitant]
     Active Substance: CYCLOPHOSPHAMIDE
     Indication: LUPUS NEPHRITIS
     Route: 065
     Dates: start: 20070921, end: 20070921
  26. ENDOXAN                            /00021101/ [Concomitant]
     Active Substance: CYCLOPHOSPHAMIDE
     Route: 065
     Dates: start: 20071121, end: 20071121
  27. PANVITAN [Concomitant]
     Indication: PROPHYLAXIS
     Route: 048
  28. LOXONIN [Concomitant]
     Active Substance: LOXOPROFEN SODIUM
     Indication: SYNOVIAL CYST
     Route: 048
  29. TALION                             /01587402/ [Concomitant]
     Active Substance: BEPOTASTINE
     Indication: UPPER RESPIRATORY TRACT INFLAMMATION
     Route: 048
     Dates: start: 200709
  30. TALION                             /01587402/ [Concomitant]
     Active Substance: BEPOTASTINE
     Route: 048
     Dates: start: 2008
  31. TALION                             /01587402/ [Concomitant]
     Active Substance: BEPOTASTINE
     Route: 048
     Dates: start: 201005
  32. MEDICON                            /00048102/ [Concomitant]
     Active Substance: DEXTROMETHORPHAN HYDROBROMIDE
     Route: 048
     Dates: start: 200909
  33. MEDICON                            /00048102/ [Concomitant]
     Active Substance: DEXTROMETHORPHAN HYDROBROMIDE
     Route: 048
     Dates: start: 200911
  34. MEDICON                            /00048102/ [Concomitant]
     Active Substance: DEXTROMETHORPHAN HYDROBROMIDE
     Route: 048
     Dates: start: 2010
  35. CEFZON [Concomitant]
     Active Substance: CEFDINIR
     Route: 048
     Dates: start: 200910
  36. BIOFERMIN R [Concomitant]
     Active Substance: BACILLUS SUBTILIS\LACTOBACILLUS ACIDOPHILUS\STREPTOCOCCUS FAECAIS
     Indication: GASTROENTERITIS
     Route: 048
     Dates: start: 2010
  37. MEDROL [Suspect]
     Active Substance: METHYLPREDNISOLONE
     Route: 048
     Dates: start: 20070825, end: 20070914
  38. GASTER [Concomitant]
     Active Substance: FAMOTIDINE
     Indication: PROPHYLAXIS
     Route: 048
     Dates: end: 20100330
  39. TALION                             /01587402/ [Concomitant]
     Active Substance: BEPOTASTINE
     Route: 048
     Dates: start: 200901
  40. TALION                             /01587402/ [Concomitant]
     Active Substance: BEPOTASTINE
     Route: 048
     Dates: start: 2010
  41. TALION                             /01587402/ [Concomitant]
     Active Substance: BEPOTASTINE
     Route: 048
     Dates: start: 2011, end: 2011
  42. ISODINE [Concomitant]
     Active Substance: POVIDONE-IODINE
     Indication: UPPER RESPIRATORY TRACT INFLAMMATION
     Dosage: UNK, UNK, UNKNOWN FREQ.
     Route: 061
     Dates: start: 200709
  43. MEDICON                            /00048102/ [Concomitant]
     Active Substance: DEXTROMETHORPHAN HYDROBROMIDE
     Route: 048
     Dates: start: 200901
  44. MEDICON                            /00048102/ [Concomitant]
     Active Substance: DEXTROMETHORPHAN HYDROBROMIDE
     Route: 048
     Dates: start: 201001
  45. CEFZON [Concomitant]
     Active Substance: CEFDINIR
     Route: 048
     Dates: start: 200911
  46. GENTACIN [Concomitant]
     Active Substance: GENTAMICIN SULFATE
     Indication: SKIN ULCER
     Dosage: UNK, UNK, UNKNOWN FREQ.
     Route: 065
  47. TACROLIMUS. [Suspect]
     Active Substance: TACROLIMUS
     Indication: LUPUS NEPHRITIS
     Route: 048
     Dates: start: 20070822, end: 20080525
  48. MEDROL [Suspect]
     Active Substance: METHYLPREDNISOLONE
     Route: 048
     Dates: start: 20070915, end: 20071012
  49. MEDROL [Suspect]
     Active Substance: METHYLPREDNISOLONE
     Route: 048
     Dates: start: 20140905, end: 20151221
  50. MEDROL [Suspect]
     Active Substance: METHYLPREDNISOLONE
     Route: 048
     Dates: start: 20151222
  51. PERSANTIN [Concomitant]
     Active Substance: DIPYRIDAMOLE
     Indication: PROPHYLAXIS
     Route: 048
     Dates: end: 20090804
  52. BONALON [Concomitant]
     Active Substance: ALENDRONATE SODIUM
     Indication: OSTEOPOROSIS
     Route: 048
     Dates: start: 20071110
  53. BONALON [Concomitant]
     Active Substance: ALENDRONATE SODIUM
     Route: 048
     Dates: end: 20100331
  54. LOXONIN [Concomitant]
     Active Substance: LOXOPROFEN SODIUM
     Indication: OSTEOARTHRITIS
     Route: 048
     Dates: start: 200901
  55. PL [Concomitant]
     Active Substance: ACETAMINOPHEN\CAFFEINE\PROMETHAZINE\SALICYLAMIDE
     Indication: UPPER RESPIRATORY TRACT INFLAMMATION
     Route: 048
     Dates: start: 200709
  56. PL [Concomitant]
     Active Substance: ACETAMINOPHEN\CAFFEINE\PROMETHAZINE\SALICYLAMIDE
     Route: 048
     Dates: start: 200812
  57. PL [Concomitant]
     Active Substance: ACETAMINOPHEN\CAFFEINE\PROMETHAZINE\SALICYLAMIDE
     Route: 048
     Dates: start: 200909
  58. PL [Concomitant]
     Active Substance: ACETAMINOPHEN\CAFFEINE\PROMETHAZINE\SALICYLAMIDE
     Route: 048
     Dates: start: 201001
  59. PL [Concomitant]
     Active Substance: ACETAMINOPHEN\CAFFEINE\PROMETHAZINE\SALICYLAMIDE
     Route: 048
     Dates: start: 2010
  60. TALION                             /01587402/ [Concomitant]
     Active Substance: BEPOTASTINE
     Route: 048
     Dates: start: 2009
  61. TALION                             /01587402/ [Concomitant]
     Active Substance: BEPOTASTINE
     Route: 048
     Dates: start: 200910
  62. MEDICON                            /00048102/ [Concomitant]
     Active Substance: DEXTROMETHORPHAN HYDROBROMIDE
     Indication: PHARYNGITIS
     Route: 048
     Dates: start: 2008
  63. STROCAIN                           /00130301/ [Concomitant]
     Indication: ABDOMINAL PAIN UPPER
     Route: 048
     Dates: start: 2008
  64. METHYCOBAL [Concomitant]
     Active Substance: METHYLCOBALAMIN
     Indication: HEADACHE
     Route: 065
     Dates: start: 20110209
  65. ADOAIR [Concomitant]
     Active Substance: FLUTICASONE PROPIONATE\SALMETEROL XINAFOATE
     Indication: COUGH
     Dosage: UNK UNK, UNKNOWN FREQ.
     Route: 065
     Dates: start: 2010
  66. TACROLIMUS. [Suspect]
     Active Substance: TACROLIMUS
     Route: 048
     Dates: start: 20080526
  67. MEDROL [Suspect]
     Active Substance: METHYLPREDNISOLONE
     Indication: LUPUS NEPHRITIS
     Route: 048
     Dates: end: 20070824
  68. MEDROL [Suspect]
     Active Substance: METHYLPREDNISOLONE
     Route: 048
     Dates: start: 20100825, end: 20110303
  69. BAYASPIRIN [Concomitant]
     Active Substance: ASPIRIN
     Indication: PROPHYLAXIS
     Route: 048
  70. EPADEL-S [Concomitant]
     Active Substance: ICOSAPENT ETHYL
     Indication: PROPHYLAXIS
     Route: 048
     Dates: end: 20080707
  71. GLAKAY [Concomitant]
     Active Substance: MENATETRENONE
     Indication: OSTEOPOROSIS
     Route: 048
     Dates: start: 20080714, end: 20130308
  72. PL [Concomitant]
     Active Substance: ACETAMINOPHEN\CAFFEINE\PROMETHAZINE\SALICYLAMIDE
     Route: 048
     Dates: start: 2009
  73. PL [Concomitant]
     Active Substance: ACETAMINOPHEN\CAFFEINE\PROMETHAZINE\SALICYLAMIDE
     Route: 048
     Dates: start: 200911
  74. TALION                             /01587402/ [Concomitant]
     Active Substance: BEPOTASTINE
     Route: 048
     Dates: start: 200904
  75. CEFZON [Concomitant]
     Active Substance: CEFDINIR
     Route: 048
     Dates: start: 200812
  76. FIBLAST                            /00801901/ [Concomitant]
     Indication: SKIN ULCER
     Dosage: UNK, UNK, UNKNOWN FREQ.
     Route: 061
  77. U-PASTA [Concomitant]
     Indication: INFECTED SKIN ULCER
     Dosage: UNK, UNK, UNKNOWN FREQ.
     Route: 061
     Dates: start: 2010
  78. CIPROXAN                           /00697202/ [Concomitant]
     Active Substance: CIPROFLOXACIN
     Indication: GASTROENTERITIS
     Route: 065
     Dates: start: 2010
  79. CRAVIT [Concomitant]
     Active Substance: LEVOFLOXACIN
     Indication: PHARYNGITIS
     Route: 065
     Dates: start: 2011
  80. EPADEL-S [Concomitant]
     Active Substance: ICOSAPENT ETHYL
     Route: 048
     Dates: start: 20080708
  81. BENET [Concomitant]
     Active Substance: RISEDRONATE SODIUM
     Indication: PRODUCT USED FOR UNKNOWN INDICATION
     Route: 048
     Dates: end: 20071109
  82. LOXONIN [Concomitant]
     Active Substance: LOXOPROFEN SODIUM
     Indication: HEADACHE
     Route: 048
     Dates: start: 2008
  83. LOXONIN [Concomitant]
     Active Substance: LOXOPROFEN SODIUM
     Indication: MENISCUS INJURY
     Route: 048
     Dates: start: 2009
  84. LOXONIN [Concomitant]
     Active Substance: LOXOPROFEN SODIUM
     Route: 048
     Dates: start: 20110209
  85. PL [Concomitant]
     Active Substance: ACETAMINOPHEN\CAFFEINE\PROMETHAZINE\SALICYLAMIDE
     Route: 048
     Dates: start: 200904
  86. TALION                             /01587402/ [Concomitant]
     Active Substance: BEPOTASTINE
     Route: 048
     Dates: start: 200812
  87. TALION                             /01587402/ [Concomitant]
     Active Substance: BEPOTASTINE
     Route: 048
     Dates: start: 200909
  88. MEDICON                            /00048102/ [Concomitant]
     Active Substance: DEXTROMETHORPHAN HYDROBROMIDE
     Indication: UPPER RESPIRATORY TRACT INFLAMMATION
     Route: 048
     Dates: start: 2008
  89. MEDICON                            /00048102/ [Concomitant]
     Active Substance: DEXTROMETHORPHAN HYDROBROMIDE
     Route: 048
     Dates: start: 200910
  90. CEFZON [Concomitant]
     Active Substance: CEFDINIR
     Indication: UPPER RESPIRATORY TRACT INFLAMMATION
     Route: 048
     Dates: start: 2008
  91. CEFZON [Concomitant]
     Active Substance: CEFDINIR
     Indication: PHARYNGITIS
     Route: 048
     Dates: start: 2008
  92. CEFZON [Concomitant]
     Active Substance: CEFDINIR
     Route: 048
     Dates: start: 200904
  93. CEFZON [Concomitant]
     Active Substance: CEFDINIR
     Route: 048
     Dates: start: 200909
  94. BUSCOPAN [Concomitant]
     Active Substance: BUTYLSCOPOLAMINE BROMIDE
     Indication: ABDOMINAL PAIN UPPER
     Dosage: UNK UNK, UNKNOWN FREQ.
     Route: 065
     Dates: start: 2010
  95. MEDROL [Suspect]
     Active Substance: METHYLPREDNISOLONE
     Route: 048
     Dates: start: 20070915, end: 20071012
  96. MEDROL [Suspect]
     Active Substance: METHYLPREDNISOLONE
     Route: 048
     Dates: start: 20110318, end: 20140904
  97. NU-LOTAN [Concomitant]
     Active Substance: LOSARTAN POTASSIUM
     Indication: HYPERTENSION
     Route: 048
     Dates: start: 20070818
  98. BONALON [Concomitant]
     Active Substance: ALENDRONATE SODIUM
     Route: 048
     Dates: start: 20100825, end: 20111026
  99. SELBEX [Concomitant]
     Active Substance: TEPRENONE
     Route: 048
     Dates: start: 20140110
  100. LOXONIN [Concomitant]
     Active Substance: LOXOPROFEN SODIUM
     Indication: UPPER RESPIRATORY TRACT INFLAMMATION
     Route: 048
     Dates: start: 200709
  101. PL [Concomitant]
     Active Substance: ACETAMINOPHEN\CAFFEINE\PROMETHAZINE\SALICYLAMIDE
     Route: 048
     Dates: start: 2011, end: 2011
  102. TALION                             /01587402/ [Concomitant]
     Active Substance: BEPOTASTINE
     Indication: PHARYNGITIS
     Route: 048
     Dates: start: 2008
  103. TALION                             /01587402/ [Concomitant]
     Active Substance: BEPOTASTINE
     Route: 048
     Dates: start: 200911
  104. MEDICON                            /00048102/ [Concomitant]
     Active Substance: DEXTROMETHORPHAN HYDROBROMIDE
     Route: 048
     Dates: start: 2009
  105. CEFZON [Concomitant]
     Active Substance: CEFDINIR
     Route: 048
     Dates: start: 201001
  106. METHYCOBAL [Concomitant]
     Active Substance: METHYLCOBALAMIN
     Indication: NEUROPATHY PERIPHERAL
     Route: 065
     Dates: start: 2010

REACTIONS (29)
  - Synovial cyst [Not Recovered/Not Resolved]
  - Upper respiratory tract inflammation [Recovered/Resolved]
  - Gastroenteritis [Recovering/Resolving]
  - Cough [Recovering/Resolving]
  - Glaucoma [Recovering/Resolving]
  - Skin ulcer [Recovering/Resolving]
  - Infected skin ulcer [Recovering/Resolving]
  - Abdominal pain upper [Recovering/Resolving]
  - Ota^s naevus [Recovered/Resolved]
  - Osteoarthritis [Recovering/Resolving]
  - Ovarian cyst [Unknown]
  - Foot fracture [Recovering/Resolving]
  - Lower limb fracture [Not Recovered/Not Resolved]
  - Meniscus injury [Not Recovered/Not Resolved]
  - Pharyngitis [Recovering/Resolving]
  - Spinal compression fracture [Unknown]
  - Calculus urinary [Recovered/Resolved]
  - Leiomyoma [Unknown]
  - Urinary tract infection [Recovered/Resolved]
  - Neuropathy peripheral [Recovering/Resolving]
  - Plantar fasciitis [Unknown]
  - Spondylolisthesis [Unknown]
  - Cough [Recovering/Resolving]
  - Pharyngitis [Recovering/Resolving]
  - Ota^s naevus [Recovering/Resolving]
  - Osteoarthritis [Not Recovered/Not Resolved]
  - Nephrolithiasis [Not Recovered/Not Resolved]
  - Headache [Recovering/Resolving]
  - Abdominal pain upper [Recovering/Resolving]

NARRATIVE: CASE EVENT DATE: 20070914
